FAERS Safety Report 6347631-X (Version None)
Quarter: 2009Q3

REPORT INFORMATION
  Report Type: 
  Country: None (occurrence: None)
  Receive Date: 20090910
  Receipt Date: 20090902
  Transmission Date: 20100115
  Serious: Yes (Hospitalization)
  Sender: FDA-Public Use
  Company Number: JP-ABBOTT-09P-087-0576022-00

PATIENT
  Sex: Male
  Weight: 66 kg

DRUGS (6)
  1. CLARITH [Suspect]
     Indication: ALLERGY TEST POSITIVE
     Dates: start: 20080421, end: 20080421
  2. CLARITHROMYCIN [Suspect]
     Indication: BRONCHITIS
     Route: 048
     Dates: start: 20080229, end: 20080303
  3. THEOPHYLLINE [Concomitant]
     Indication: BRONCHITIS
     Route: 048
     Dates: start: 20080229, end: 20080315
  4. L-CARBOCYSTINE [Concomitant]
     Indication: BRONCHITIS
     Route: 048
     Dates: start: 20080229, end: 20080315
  5. LISINOPRIL [Concomitant]
     Indication: LEUKOCYTOCLASTIC VASCULITIS
     Route: 048
     Dates: end: 20080325
  6. AMLODIPINE BESYLATE [Concomitant]
     Indication: LEUKOCYTOCLASTIC VASCULITIS
     Route: 048
     Dates: end: 20080325

REACTIONS (1)
  - LEUKOCYTOCLASTIC VASCULITIS [None]
